FAERS Safety Report 4513611-X (Version None)
Quarter: 2004Q4

REPORT INFORMATION
  Report Type: 
  Country: None (occurrence: None)
  Receive Date: 20041130
  Receipt Date: 20040812
  Transmission Date: 20050328
  Serious: No
  Sender: FDA-Public Use
  Company Number: US-GLAXOSMITHKLINE-A0521978A

PATIENT
  Age: 52 Year
  Sex: Female

DRUGS (6)
  1. WELLBUTRIN [Suspect]
     Indication: DEPRESSION
     Dosage: 300MG PER DAY
     Route: 048
  2. KLONOPIN [Concomitant]
  3. ZOLOFT [Concomitant]
  4. VERAPAMIL [Concomitant]
  5. TOPAMAX [Concomitant]
  6. RESPERIDOL [Concomitant]

REACTIONS (2)
  - BALANCE DISORDER [None]
  - TREMOR [None]
